FAERS Safety Report 4727138-3 (Version None)
Quarter: 2005Q3

REPORT INFORMATION
  Report Type: 
  Country: None (occurrence: None)
  Receive Date: 20050726
  Receipt Date: 20050726
  Transmission Date: 20060218
  Serious: Yes (Other)
  Sender: FDA-Public Use
  Company Number: None

PATIENT
  Age: 21 Year
  Sex: Female
  Weight: 68.9467 kg

DRUGS (1)
  1. BETAMETHASONE DIPROPIONATE [Suspect]
     Indication: PSORIASIS
     Dosage: APPLY BID
     Dates: start: 20050301

REACTIONS (3)
  - ALOPECIA [None]
  - DRUG INEFFECTIVE [None]
  - PRURITUS [None]
